FAERS Safety Report 8017167-9 (Version None)
Quarter: 2012Q1

REPORT INFORMATION
  Report Type: 
  Country: None (occurrence: None)
  Receive Date: 20120102
  Receipt Date: 20111221
  Transmission Date: 20120608
  Serious: Yes (Other)
  Sender: FDA-Public Use
  Company Number: US-ROCHE-788912

PATIENT
  Sex: Male
  Weight: 74.91 kg

DRUGS (1)
  1. ACCUTANE [Suspect]
     Indication: ACNE
     Dosage: 40-60MG
     Route: 048
     Dates: start: 19840919, end: 19850213

REACTIONS (6)
  - CROHN'S DISEASE [None]
  - EMOTIONAL DISTRESS [None]
  - DRY SKIN [None]
  - RECTAL FISSURE [None]
  - INFLAMMATORY BOWEL DISEASE [None]
  - ILEAL PERFORATION [None]
